FAERS Safety Report 9671186 (Version 1)
Quarter: 2013Q4

REPORT INFORMATION
  Report Type: Spontaneous
  Country: JP (occurrence: JP)
  Receive Date: 20131106
  Receipt Date: 20131106
  Transmission Date: 20140711
  Serious: Yes (Other)
  Sender: FDA-Public Use
  Company Number: JP-ASTELLAS-2013JP012030

PATIENT
  Age: 45 Year
  Sex: Female

DRUGS (15)
  1. FUNGUARD [Suspect]
     Indication: ANTIBIOTIC PROPHYLAXIS
     Route: 065
  2. FUNGUARD [Suspect]
     Route: 065
  3. VANCOMYCIN HYDROCHLORIDE [Suspect]
     Indication: ANTIBIOTIC PROPHYLAXIS
     Route: 065
  4. VANCOMYCIN HYDROCHLORIDE [Suspect]
     Route: 065
  5. MEROPENEM [Suspect]
     Indication: ANTIBIOTIC PROPHYLAXIS
     Route: 065
  6. LEVOFLOXACIN HYDRATE [Concomitant]
     Indication: PROPHYLAXIS
     Route: 048
  7. LEVOFLOXACIN HYDRATE [Concomitant]
     Route: 048
  8. FLUCONAZOLE [Concomitant]
     Indication: PROPHYLAXIS
     Route: 048
  9. FLUCONAZOLE [Concomitant]
     Route: 048
  10. CEFEPIME HYDROCHLORIDE [Concomitant]
     Indication: FEBRILE NEUTROPENIA
     Dosage: 4 G, UNKNOWN/D
     Route: 065
  11. CEFEPIME HYDROCHLORIDE [Concomitant]
     Route: 065
  12. IDAMYCIN [Concomitant]
     Indication: CHEMOTHERAPY
     Route: 065
  13. IDAMYCIN [Concomitant]
     Indication: CHEMOTHERAPY
     Route: 065
  14. CYTARABINE [Concomitant]
     Indication: CHEMOTHERAPY
     Route: 065
  15. CYTARABINE [Concomitant]
     Indication: CHEMOTHERAPY
     Route: 065

REACTIONS (2)
  - Fungaemia [Unknown]
  - Device related infection [Unknown]
